FAERS Safety Report 22075481 (Version 1)
Quarter: 2023Q1

REPORT INFORMATION
  Report Type: Spontaneous
  Country: US (occurrence: None)
  Receive Date: 20230307
  Receipt Date: 20230307
  Transmission Date: 20230418
  Serious: Yes (Hospitalization)
  Sender: FDA-Public Use
  Company Number: None

PATIENT
  Age: 88 Year
  Sex: Female

DRUGS (1)
  1. XELODA [Suspect]
     Active Substance: CAPECITABINE
     Dosage: FREQUENCY : DAILY;?
     Route: 048
     Dates: start: 201601

REACTIONS (4)
  - Abdominal pain upper [None]
  - Blood pressure fluctuation [None]
  - Blood sodium decreased [None]
  - Therapy interrupted [None]

NARRATIVE: CASE EVENT DATE: 20230201
